FAERS Safety Report 9422431 (Version 2)
Quarter: 2013Q3

REPORT INFORMATION
  Report Type: Spontaneous
  Country: US (occurrence: US)
  Receive Date: 20130726
  Receipt Date: 20130815
  Transmission Date: 20140515
  Serious: Yes (Hospitalization, Other)
  Sender: FDA-Public Use
  Company Number: US-BAYER-2013-087845

PATIENT
  Sex: Female
  Weight: 72 kg

DRUGS (11)
  1. BETASERON [Suspect]
     Indication: MULTIPLE SCLEROSIS
     Dosage: UNK UNK, QOD
     Dates: start: 20090402, end: 20130416
  2. ALPRAZOLAM [Concomitant]
     Dosage: 1 G, QD
  3. PROPANOLOL [Concomitant]
     Dosage: 40 MG, BID
  4. LYRICA [Concomitant]
     Dosage: 300 MG, UNK
  5. NABUMETONE [Concomitant]
     Dosage: 500 MG, 1 TO 3 DAILY
  6. TIZANIDINE [Concomitant]
     Dosage: 4 MG, 1 TO 2
  7. ASPIRIN [Concomitant]
     Dosage: 81 MG, UNK
  8. VITAMIN D [Concomitant]
     Dosage: 20000 A WEEK
  9. CALCIUM W/VITAMIN D [CALCIUM CARBONATE,COLECALCIFEROL] [Concomitant]
     Dosage: UNK UNK, QD
  10. MAGNESIUM [Concomitant]
  11. CENTRUM SILVER [Concomitant]

REACTIONS (5)
  - Temporomandibular joint syndrome [None]
  - Depression [Not Recovered/Not Resolved]
  - Pain [Recovering/Resolving]
  - Headache [None]
  - Branchial cyst [Recovering/Resolving]
